FAERS Safety Report 8628199 (Version 2)
Quarter: 2013Q3

REPORT INFORMATION
  Report Type: Spontaneous
  Country: US (occurrence: US)
  Receive Date: 20120621
  Receipt Date: 20130913
  Transmission Date: 20140515
  Serious: Yes (Hospitalization, Other)
  Sender: FDA-Public Use
  Company Number: US-B.I. PHARMACEUTICALS,INC./RIDGEFIELD-2012-BP-13725BP

PATIENT
  Age: 79 Year
  Sex: Male

DRUGS (5)
  1. PRADAXA [Suspect]
     Indication: ATRIAL FIBRILLATION
     Dosage: 300 MG
     Route: 048
  2. AMLODIPINE [Concomitant]
     Dosage: 5 MG
  3. VALSARTAN [Concomitant]
     Dosage: 320 MG
  4. ROSUVASTATIN [Concomitant]
     Dosage: 10 MG
  5. VITAMIN D [Concomitant]
     Dosage: 2000 U

REACTIONS (6)
  - Renal failure acute [Not Recovered/Not Resolved]
  - Renal embolism [Unknown]
  - Hypertension [Unknown]
  - Prothrombin time prolonged [Unknown]
  - Thrombin time prolonged [Unknown]
  - Glomerulosclerosis [Unknown]
